FAERS Safety Report 15769359 (Version 20)
Quarter: 2021Q2

REPORT INFORMATION
  Report Type: Other
  Country: CA (occurrence: CA)
  Receive Date: 20181228
  Receipt Date: 20210623
  Transmission Date: 20210716
  Serious: Yes (Other)
  Sender: FDA-Public Use
  Company Number: CA-ROCHE-2187617

PATIENT
  Age: 43 Year
  Sex: Female

DRUGS (24)
  1. BENADRYL [Suspect]
     Active Substance: DIPHENHYDRAMINE HYDROCHLORIDE
     Indication: PREMEDICATION
     Dosage: FOR PAST 3 NIGHTS
     Route: 048
     Dates: start: 201906
  2. CORTISONE [Suspect]
     Active Substance: CORTISONE
     Indication: PRODUCT USED FOR UNKNOWN INDICATION
     Route: 065
  3. ARTHROTEC [Concomitant]
     Active Substance: DICLOFENAC SODIUM\MISOPROSTOL
     Indication: CERVICAL SPINAL STENOSIS
     Route: 048
     Dates: start: 2017
  4. SINGULAIR [Concomitant]
     Active Substance: MONTELUKAST SODIUM
     Route: 048
  5. DECADRON [Concomitant]
     Active Substance: DEXAMETHASONE
     Indication: PREMEDICATION
     Route: 042
  6. ARTHROTEC [Concomitant]
     Active Substance: DICLOFENAC SODIUM\MISOPROSTOL
     Indication: CERVICAL SPINAL STENOSIS
     Dosage: WHEN NEEDED
     Route: 048
     Dates: start: 2017
  7. VENTOLIN [Concomitant]
     Active Substance: ALBUTEROL SULFATE
  8. REACTINE [CETIRIZINE HYDROCHLORIDE] [Concomitant]
     Active Substance: CETIRIZINE HYDROCHLORIDE
     Route: 048
  9. OCREVUS [Suspect]
     Active Substance: OCRELIZUMAB
     Indication: RELAPSING-REMITTING MULTIPLE SCLEROSIS
     Dosage: 300 MG DAY 0 AND 14, THEN 600 MG Q 6 MONTHS?SUBSEQUENT DOSE: 15/NOV/2019,
     Route: 042
     Dates: start: 20180917
  10. OCREVUS [Suspect]
     Active Substance: OCRELIZUMAB
     Route: 042
     Dates: start: 20200610
  11. CYCLOBENZAPRINE. [Concomitant]
     Active Substance: CYCLOBENZAPRINE
  12. BENADRYL [Suspect]
     Active Substance: DIPHENHYDRAMINE HYDROCHLORIDE
     Indication: ACNE
     Dosage: FOR PAST 3 NIGHTS
     Route: 048
     Dates: start: 201906
  13. ACETAMINOPHENE [Concomitant]
     Active Substance: ACETAMINOPHEN
     Indication: PREMEDICATION
     Route: 048
  14. MODAFINIL. [Concomitant]
     Active Substance: MODAFINIL
  15. FAMOTIDINE. [Concomitant]
     Active Substance: FAMOTIDINE
     Route: 042
  16. OCREVUS [Suspect]
     Active Substance: OCRELIZUMAB
     Dosage: 600 MG EVERY 6 MONTH.
     Route: 042
  17. ZOPICLONE [Concomitant]
     Active Substance: ZOPICLONE
     Dosage: AS NEEDED TO HELP SLEEP
  18. TRAMADOL. [Concomitant]
     Active Substance: TRAMADOL
     Indication: INSOMNIA
  19. FLOVENT [Concomitant]
     Active Substance: FLUTICASONE PROPIONATE
  20. VITAMIN B12 [Concomitant]
     Active Substance: CYANOCOBALAMIN
     Route: 048
     Dates: start: 201702
  21. SOLIFENACIN [Concomitant]
     Active Substance: SOLIFENACIN
     Route: 048
     Dates: start: 201806
  22. RITALIN [Concomitant]
     Active Substance: METHYLPHENIDATE HYDROCHLORIDE
  23. SALBUTAMOL [Concomitant]
     Active Substance: ALBUTEROL
  24. VENTOLIN [Concomitant]
     Active Substance: ALBUTEROL SULFATE

REACTIONS (58)
  - Cough [Not Recovered/Not Resolved]
  - Hypersomnia [Not Recovered/Not Resolved]
  - Tooth fracture [Unknown]
  - Somnolence [Not Recovered/Not Resolved]
  - Back pain [Not Recovered/Not Resolved]
  - T-lymphocyte count increased [Not Recovered/Not Resolved]
  - Teeth brittle [Not Recovered/Not Resolved]
  - Eye disorder [Not Recovered/Not Resolved]
  - Jessner^s lymphocytic infiltration [Not Recovered/Not Resolved]
  - Dizziness [Not Recovered/Not Resolved]
  - Solar lentigo [Not Recovered/Not Resolved]
  - Vertigo [Not Recovered/Not Resolved]
  - Malaise [Not Recovered/Not Resolved]
  - Headache [Not Recovered/Not Resolved]
  - Arthropod bite [Unknown]
  - Somnolence [Unknown]
  - Muscle spasms [Not Recovered/Not Resolved]
  - Toothache [Not Recovered/Not Resolved]
  - Ligament sprain [Not Recovered/Not Resolved]
  - Dyspnoea [Not Recovered/Not Resolved]
  - Pruritus [Recovering/Resolving]
  - Paraesthesia ear [Not Recovered/Not Resolved]
  - Neck pain [Unknown]
  - Asthenia [Not Recovered/Not Resolved]
  - Hypoaesthesia [Unknown]
  - Cognitive disorder [Not Recovered/Not Resolved]
  - Chest discomfort [Not Recovered/Not Resolved]
  - Headache [Recovered/Resolved]
  - Sensory disturbance [Recovering/Resolving]
  - Urinary tract infection [Unknown]
  - Abdominal discomfort [Not Recovered/Not Resolved]
  - Photosensitivity reaction [Unknown]
  - Cyst [Recovering/Resolving]
  - Vision blurred [Unknown]
  - Fatigue [Not Recovered/Not Resolved]
  - Tooth disorder [Unknown]
  - Rhinorrhoea [Not Recovered/Not Resolved]
  - Oropharyngeal pain [Not Recovered/Not Resolved]
  - Discomfort [Unknown]
  - Skin mass [Recovered/Resolved]
  - Accident [Unknown]
  - Hot flush [Not Recovered/Not Resolved]
  - Sneezing [Not Recovered/Not Resolved]
  - Decreased appetite [Not Recovered/Not Resolved]
  - Nasopharyngitis [Not Recovered/Not Resolved]
  - Nausea [Not Recovered/Not Resolved]
  - Tooth extraction [Unknown]
  - Urinary incontinence [Not Recovered/Not Resolved]
  - Limb injury [Not Recovered/Not Resolved]
  - Infusion related reaction [Recovered/Resolved]
  - Hyperaesthesia teeth [Unknown]
  - Anal incontinence [Unknown]
  - Constipation [Not Recovered/Not Resolved]
  - Depression [Recovered/Resolved]
  - Choking [Not Recovered/Not Resolved]
  - Fall [Unknown]
  - Alopecia [Unknown]
  - Excessive cerumen production [Not Recovered/Not Resolved]

NARRATIVE: CASE EVENT DATE: 20180917
